FAERS Safety Report 21415052 (Version 1)
Quarter: 2022Q4

REPORT INFORMATION
  Report Type: Report from Study
  Country: US (occurrence: US)
  Receive Date: 20221006
  Receipt Date: 20221006
  Transmission Date: 20230113
  Serious: Yes (Other)
  Sender: FDA-Public Use
  Company Number: US-ABBVIE-4137115

PATIENT
  Sex: Female

DRUGS (2)
  1. HUMIRA [Suspect]
     Active Substance: ADALIMUMAB
     Indication: Product used for unknown indication
     Route: 058
  2. MODERNA COVID-19 VACCINE [Suspect]
     Active Substance: ELASOMERAN
     Indication: COVID-19 immunisation
     Dosage: 1ST DOSE - ONCE
     Route: 030

REACTIONS (6)
  - Knee arthroplasty [Recovered/Resolved with Sequelae]
  - Herpes zoster [Recovered/Resolved]
  - Knee arthroplasty [Recovered/Resolved with Sequelae]
  - COVID-19 [Recovered/Resolved]
  - Bone disorder [Unknown]
  - Knee arthroplasty [Recovered/Resolved with Sequelae]

NARRATIVE: CASE EVENT DATE: 20050101
